FAERS Safety Report 26103560 (Version 1)
Quarter: 2025Q4

REPORT INFORMATION
  Report Type: Spontaneous
  Country: US (occurrence: US)
  Receive Date: 20251129
  Receipt Date: 20251129
  Transmission Date: 20260118
  Serious: Yes (Hospitalization, Other)
  Sender: AMNEAL
  Company Number: US-AMNEAL PHARMACEUTICALS-2025-AMRX-04629

PATIENT
  Age: 38 Year
  Sex: Male

DRUGS (2)
  1. TESTOSTERONE [Suspect]
     Active Substance: TESTOSTERONE
     Indication: Hypogonadism
     Dosage: UNK
     Route: 030
  2. HEPARIN [Concomitant]
     Active Substance: HEPARIN SODIUM
     Indication: Product used for unknown indication
     Dosage: UNK
     Route: 065

REACTIONS (11)
  - Ischaemic cardiomyopathy [Unknown]
  - Haemorrhage intracranial [Unknown]
  - Renal infarct [Unknown]
  - Renal artery occlusion [Unknown]
  - Cerebral infarction [Unknown]
  - Cardiac ventricular thrombosis [Unknown]
  - Gastrointestinal haemorrhage [Recovered/Resolved]
  - Peripheral ischaemia [Unknown]
  - Cerebrovascular accident [Unknown]
  - Polycythaemia [Recovered/Resolved]
  - Acute myocardial infarction [Unknown]
